FAERS Safety Report 15155809 (Version 1)
Quarter: 2018Q3

REPORT INFORMATION
  Report Type: Spontaneous
  Country: DE (occurrence: DE)
  Receive Date: 20180717
  Receipt Date: 20180717
  Transmission Date: 20181010
  Serious: Yes (Other)
  Sender: FDA-Public Use
  Company Number: DE-US WORLDMEDS, LLC-STA_00018004

PATIENT
  Age: 67 Year
  Sex: Male
  Weight: 83 kg

DRUGS (9)
  1. VITAMIN B12 1000 ?G [Concomitant]
     Indication: VITAMIN B COMPLEX DEFICIENCY
  2. CAPTOPRIL 12,5 MG [Concomitant]
     Indication: HYPERTENSION
  3. MADOPAR LT 100/25MG [Concomitant]
     Indication: PARKINSON^S DISEASE
     Route: 048
  4. APOMORPHINE HYDROCHLORIDE [Suspect]
     Active Substance: APOMORPHINE HYDROCHLORIDE
     Indication: PARKINSON^S DISEASE
     Route: 058
     Dates: start: 20100604
  5. ZOLOFT [Concomitant]
     Active Substance: SERTRALINE HYDROCHLORIDE
     Indication: PARKINSON^S DISEASE
  6. DOMPERIDON 10MG [Concomitant]
     Indication: PARKINSON^S DISEASE
     Route: 048
  7. MADOPAR DEPOT 100/25MG [Concomitant]
     Indication: PARKINSON^S DISEASE
     Route: 048
  8. SEROQUEL [Concomitant]
     Active Substance: QUETIAPINE FUMARATE
     Indication: PARKINSON^S DISEASE
     Route: 048
  9. MADOPAR T 100/25MG [Concomitant]
     Indication: PARKINSON^S DISEASE
     Dosage: 2X1 TBL 7D+2X1,5 TBL/D

REACTIONS (6)
  - Pneumonia [Recovered/Resolved]
  - Lacrimation increased [Not Recovered/Not Resolved]
  - Salivary hypersecretion [Not Recovered/Not Resolved]
  - Somnolence [Not Recovered/Not Resolved]
  - Nodule [Not Recovered/Not Resolved]
  - Injection site necrosis [Not Recovered/Not Resolved]

NARRATIVE: CASE EVENT DATE: 20100604
